FAERS Safety Report 5330551-7 (Version None)
Quarter: 2007Q2

REPORT INFORMATION
  Report Type: 
  Country: None (occurrence: None)
  Receive Date: 20070516
  Receipt Date: 20070502
  Transmission Date: 20071010
  Serious: Yes (Other)
  Sender: FDA-Public Use
  Company Number: 02100-JPN-07-0182

PATIENT
  Age: 74 Year
  Sex: Female

DRUGS (4)
  1. CILOSTAZOL [Suspect]
     Indication: CEREBRAL INFARCTION
     Dosage: 200 MG
     Route: 048
     Dates: start: 20070317, end: 20070324
  2. CLINIDIPINE [Concomitant]
  3. SENNOSIDE [Concomitant]
  4. LOSARTAN POTASSIUM [Concomitant]

REACTIONS (8)
  - BACK PAIN [None]
  - BLOOD PRESSURE SYSTOLIC DECREASED [None]
  - BRONCHITIS [None]
  - CHEST PAIN [None]
  - HEPATIC FUNCTION ABNORMAL [None]
  - OEDEMA [None]
  - PAIN IN EXTREMITY [None]
  - TOXIC SKIN ERUPTION [None]
